FAERS Safety Report 15435580 (Version 1)
Quarter: 2018Q3

REPORT INFORMATION
  Report Type: Spontaneous
  Country: ES (occurrence: ES)
  Receive Date: 20180927
  Receipt Date: 20180927
  Transmission Date: 20181010
  Serious: Yes (Hospitalization)
  Sender: FDA-Public Use
  Company Number: ES-FRESENIUS KABI-FK201809952

PATIENT
  Age: 41 Year
  Sex: Female

DRUGS (11)
  1. REMIFENTANIL (MANUFACTURER UNKNOWN) [Suspect]
     Active Substance: REMIFENTANIL
     Indication: ORTHOGNATHIC SURGERY
     Route: 065
  2. MORPHINE [Suspect]
     Active Substance: MORPHINE
     Indication: ORTHOGNATHIC SURGERY
     Route: 065
  3. MIDAZOLAM [Concomitant]
     Active Substance: MIDAZOLAM HYDROCHLORIDE
     Indication: PRODUCT USED FOR UNKNOWN INDICATION
     Route: 042
  4. ROCURONIUM [Suspect]
     Active Substance: ROCURONIUM BROMIDE
     Indication: ORTHOGNATHIC SURGERY
     Route: 065
  5. PROPOFOL (MANUFACTURER UNKNOWN) [Suspect]
     Active Substance: PROPOFOL
     Indication: ORTHOGNATHIC SURGERY
     Route: 065
  6. REMIFENTANIL (MANUFACTURER UNKNOWN) [Suspect]
     Active Substance: REMIFENTANIL
     Route: 065
  7. MORPHINE [Suspect]
     Active Substance: MORPHINE
     Indication: ORTHOGNATHIC SURGERY
     Route: 065
  8. SEVOFLURANE. [Suspect]
     Active Substance: SEVOFLURANE
     Indication: ORTHOGNATHIC SURGERY
     Route: 065
  9. SEVOFLURANE. [Suspect]
     Active Substance: SEVOFLURANE
     Indication: ORTHOGNATHIC SURGERY
     Route: 065
  10. OXYMETAZOLINE [Concomitant]
     Active Substance: OXYMETAZOLINE
     Indication: PRODUCT USED FOR UNKNOWN INDICATION
  11. ROCURONIUM [Suspect]
     Active Substance: ROCURONIUM BROMIDE
     Route: 065

REACTIONS (1)
  - Amaurosis [Not Recovered/Not Resolved]
